FAERS Safety Report 10411784 (Version 1)
Quarter: 2014Q2

REPORT INFORMATION
  Report Type: Spontaneous
  Country: US (occurrence: None)
  Receive Date: 20140514
  Receipt Date: 20140514
  Transmission Date: 20141212
  Serious: Yes (Other)
  Sender: FDA-Public Use
  Company Number: 110125

PATIENT
  Sex: 0

DRUGS (1)
  1. CIMZIA [Suspect]
     Dosage: 400 MG 1X/ MONTH?200 MG 1X/ 2 WEEKS?

REACTIONS (2)
  - Influenza like illness [None]
  - Pain [None]
